FAERS Safety Report 4679774-0 (Version None)
Quarter: 2005Q2

REPORT INFORMATION
  Report Type: 
  Country: None (occurrence: None)
  Receive Date: 20050531
  Receipt Date: 20050512
  Transmission Date: 20051028
  Serious: Yes (Hospitalization)
  Sender: FDA-Public Use
  Company Number: 2005078402

PATIENT
  Age: 70 Year
  Sex: Male

DRUGS (5)
  1. ZOLOFT [Suspect]
     Indication: ILL-DEFINED DISORDER
  2. SOMAC (PANTOPRAZOLE SODIUM) [Suspect]
     Indication: ILL-DEFINED DISORDER
  3. ALLOPURINOL [Concomitant]
  4. STELAZINE [Concomitant]
  5. MEBEVERINE (MEBEVERINE) [Concomitant]

REACTIONS (3)
  - GRANULOMA [None]
  - SPLENOMEGALY [None]
  - THROMBOCYTOPENIA [None]
